FAERS Safety Report 5478185-8 (Version None)
Quarter: 2007Q4

REPORT INFORMATION
  Report Type: 
  Country: None (occurrence: None)
  Receive Date: 20071005
  Receipt Date: 20070618
  Transmission Date: 20080405
  Serious: No
  Sender: FDA-Public Use
  Company Number: US-BRISTOL-MYERS SQUIBB COMPANY-13728084

PATIENT
  Age: 61 Year
  Sex: Female
  Weight: 77 kg

DRUGS (8)
  1. AVAPRO [Suspect]
     Indication: HYPERTENSION
     Dosage: DOSE INCREASED TO 300MG IN DEC-2006.
     Route: 048
     Dates: start: 20060316, end: 20070330
  2. AMBIEN [Concomitant]
     Indication: SLEEP DISORDER
  3. ASPIRIN [Concomitant]
     Dates: start: 20010101
  4. FOLATE [Concomitant]
     Dates: start: 20010101
  5. M.V.I. [Concomitant]
     Dates: start: 20010101
  6. CALCIUM + VITAMIN D [Concomitant]
     Dates: start: 20010101
  7. VITAMIN E [Concomitant]
     Dates: start: 20010101
  8. IBUPROFEN [Concomitant]
     Dates: start: 20010101

REACTIONS (3)
  - BLEPHAROSPASM [None]
  - INSOMNIA [None]
  - SLEEP TERROR [None]
